FAERS Safety Report 8410348-1 (Version None)
Quarter: 2012Q2

REPORT INFORMATION
  Report Type: 
  Country: None (occurrence: None)
  Receive Date: 20120605
  Receipt Date: 20120531
  Transmission Date: 20120825
  Serious: Yes (Other)
  Sender: FDA-Public Use
  Company Number: PHHY2010CA44974

PATIENT
  Sex: Male

DRUGS (8)
  1. ZOMETA [Suspect]
     Indication: PROSTATE CANCER METASTATIC
     Dosage: 3.5 MG EVERY 12 WEEKS
     Route: 042
     Dates: start: 20090516, end: 20120219
  2. CALCIUM [Concomitant]
  3. ZOMETA [Suspect]
     Indication: METASTASES TO BONE
  4. COVERSYL                                /BEL/ [Concomitant]
  5. HYDROMORPHONE HCL [Concomitant]
  6. VITAMIN D [Concomitant]
  7. ELIGARD [Concomitant]
  8. DIBUDID [Concomitant]

REACTIONS (8)
  - ADENOCARCINOMA [None]
  - HAEMATOCRIT DECREASED [None]
  - NEOPLASM MALIGNANT [None]
  - BLOOD BICARBONATE INCREASED [None]
  - RED BLOOD CELL COUNT DECREASED [None]
  - BLOOD PRESSURE SYSTOLIC INCREASED [None]
  - HAEMOGLOBIN DECREASED [None]
  - HYPERTENSION [None]
